FAERS Safety Report 6944381-3 (Version None)
Quarter: 2010Q3

REPORT INFORMATION
  Report Type: 
  Country: None (occurrence: None)
  Receive Date: 20100827
  Receipt Date: 20100819
  Transmission Date: 20110219
  Serious: No
  Sender: FDA-Public Use
  Company Number: US-US-EMD SERONO, INC.-7000337

PATIENT
  Sex: Female

DRUGS (1)
  1. REBIF [Suspect]
     Indication: MULTIPLE SCLEROSIS
     Route: 058
     Dates: start: 20020301, end: 20100630

REACTIONS (10)
  - ANXIETY [None]
  - ARTHRALGIA [None]
  - DEPRESSION [None]
  - DRUG ADMINISTERED AT INAPPROPRIATE SITE [None]
  - HEART RATE INCREASED [None]
  - INJECTION SITE INDURATION [None]
  - INJECTION SITE MASS [None]
  - INJECTION SITE SCAR [None]
  - MIGRAINE [None]
  - SUICIDAL IDEATION [None]
